FAERS Safety Report 20784804 (Version 1)
Quarter: 2022Q2

REPORT INFORMATION
  Report Type: Spontaneous
  Country: US (occurrence: US)
  Receive Date: 20220504
  Receipt Date: 20220504
  Transmission Date: 20220721
  Serious: No
  Sender: FDA-Public Use
  Company Number: US-PFIZER INC-202101193411

PATIENT
  Age: 19 Year
  Sex: Male

DRUGS (1)
  1. VENLAFAXINE HCL [Suspect]
     Active Substance: VENLAFAXINE HYDROCHLORIDE
     Dosage: 37.5 MG
     Route: 048

REACTIONS (5)
  - Withdrawal syndrome [Not Recovered/Not Resolved]
  - Wrong technique in product usage process [Unknown]
  - Weight decreased [Unknown]
  - Somnolence [Unknown]
  - Loss of personal independence in daily activities [Unknown]
